FAERS Safety Report 5202097-8 (Version None)
Quarter: 2007Q1

REPORT INFORMATION
  Report Type: 
  Country: None (occurrence: None)
  Receive Date: 20070109
  Receipt Date: 20070103
  Transmission Date: 20070707
  Serious: Yes (Life-Threatening, Other)
  Sender: FDA-Public Use
  Company Number: SE-JNJFOC-20061203339

PATIENT
  Sex: Male

DRUGS (5)
  1. DURAGESIC-100 [Suspect]
     Indication: DRUG USE FOR UNKNOWN INDICATION
     Route: 062
  2. METHADONE HCL [Suspect]
     Route: 048
  3. METHADONE HCL [Suspect]
     Route: 048
  4. METHADONE HCL [Suspect]
     Route: 048
  5. METHADONE HCL [Suspect]
     Indication: DRUG USE FOR UNKNOWN INDICATION
     Route: 048

REACTIONS (3)
  - DEPENDENCE [None]
  - DYSPNOEA [None]
  - PNEUMONIA [None]
